FAERS Safety Report 15774492 (Version 5)
Quarter: 2019Q1

REPORT INFORMATION
  Report Type: Report from Study
  Country: BE (occurrence: BE)
  Receive Date: 20181229
  Receipt Date: 20190221
  Transmission Date: 20190417
  Serious: Yes (Death, Hospitalization, Other)
  Sender: FDA-Public Use
  Company Number: PHHY2017BE157329

PATIENT
  Age: 64 Year
  Sex: Male

DRUGS (3)
  1. HYGROTON [Concomitant]
     Active Substance: CHLORTHALIDONE
     Indication: CARDIAC FAILURE
     Dosage: 50 MG, QD
     Route: 048
     Dates: start: 20170906, end: 20171018
  2. BUMETANIDE. [Concomitant]
     Active Substance: BUMETANIDE
     Indication: CARDIAC FAILURE
     Dosage: 5 MG, UNK
     Route: 065
     Dates: start: 20170906
  3. ENTRESTO [Suspect]
     Active Substance: SACUBITRIL\VALSARTAN
     Indication: CARDIAC FAILURE CHRONIC
     Dosage: 1 DF (24/26 MG), BID
     Route: 048
     Dates: start: 20170906, end: 20180212

REACTIONS (11)
  - Death [Fatal]
  - Lower limb fracture [Recovering/Resolving]
  - Pneumonia [Recovered/Resolved]
  - Urinary tract infection [Recovering/Resolving]
  - Renal impairment [Recovered/Resolved]
  - Diabetes mellitus [Not Recovered/Not Resolved]
  - Dehydration [Unknown]
  - Acute kidney injury [Recovered/Resolved]
  - Glycosylated haemoglobin increased [Unknown]
  - Infection [Unknown]
  - Oliguria [Unknown]

NARRATIVE: CASE EVENT DATE: 20171011
